FAERS Safety Report 24257194 (Version 2)
Quarter: 2024Q3

REPORT INFORMATION
  Report Type: Report from Study
  Country: ES (occurrence: ES)
  Receive Date: 20240828
  Receipt Date: 20240830
  Transmission Date: 20241017
  Serious: Yes (Other)
  Sender: ABBVIE
  Company Number: ES-ABBVIE-5812495

PATIENT
  Sex: Female

DRUGS (6)
  1. CARBIDOPA\LEVODOPA [Suspect]
     Active Substance: CARBIDOPA\LEVODOPA
     Indication: Parkinson^s disease
     Route: 050
     Dates: start: 20220623, end: 202406
  2. CARBIDOPA\LEVODOPA [Suspect]
     Active Substance: CARBIDOPA\LEVODOPA
     Dosage: INCREASE THE CONTINUOUS RATE BY 0.2 ML/H
     Route: 050
     Dates: start: 202406, end: 20240620
  3. CARBIDOPA\LEVODOPA [Suspect]
     Active Substance: CARBIDOPA\LEVODOPA
     Dosage: DECREASING THE MORNING DOSE BY 1 ML
     Route: 050
     Dates: start: 20240620, end: 202407
  4. CARBIDOPA\LEVODOPA [Suspect]
     Active Substance: CARBIDOPA\LEVODOPA
     Dosage: CONTINUOUS DOSE OF 3.20 ML/H
     Route: 050
     Dates: start: 202407, end: 202408
  5. CARBIDOPA\LEVODOPA [Suspect]
     Active Substance: CARBIDOPA\LEVODOPA
     Dosage: DECREASING THE CONTINUOUS DOSE TO 3 ML/H, INCREASE THE CONTINUOUS RATE BY 0.1 ML/H
     Route: 050
     Dates: start: 202408
  6. FUROSEMIDE [Concomitant]
     Active Substance: FUROSEMIDE
     Indication: Product used for unknown indication
     Dosage: ADJUSTED
     Dates: start: 202408, end: 202408

REACTIONS (11)
  - Hypotension [Unknown]
  - Freezing phenomenon [Unknown]
  - On and off phenomenon [Recovered/Resolved]
  - Hyperkinesia [Not Recovered/Not Resolved]
  - Therapeutic product effect incomplete [Unknown]
  - Fall [Recovered/Resolved]
  - Feeding disorder [Unknown]
  - Muscular weakness [Not Recovered/Not Resolved]
  - Vomiting [Unknown]
  - Fall [Recovered/Resolved]
  - Dyskinesia [Recovered/Resolved]

NARRATIVE: CASE EVENT DATE: 20240101
